FAERS Safety Report 10579725 (Version 2)
Quarter: 2014Q4

REPORT INFORMATION
  Report Type: Spontaneous
  Country: JP (occurrence: JP)
  Receive Date: 20141112
  Receipt Date: 20141112
  Transmission Date: 20150529
  Serious: Yes (Hospitalization, Other)
  Sender: FDA-Public Use
  Company Number: JP-GLAXOSMITHKLINE-B0950884A

PATIENT
  Age: 66 Year
  Sex: Female

DRUGS (6)
  1. RIVOTRIL [Concomitant]
     Active Substance: CLONAZEPAM
     Dosage: 1 MG, QD
     Dates: start: 20110331
  2. LENDORMIN [Concomitant]
     Active Substance: BROTIZOLAM
     Dosage: 0.25 MG, QD
     Dates: start: 20100126, end: 20131130
  3. LAMOTRIGINE. [Suspect]
     Active Substance: LAMOTRIGINE
     Indication: DEPRESSION
     Dosage: 25 MG, QD
     Route: 048
     Dates: start: 20131025, end: 20131107
  4. DEPROMEL [Concomitant]
     Active Substance: FLUVOXAMINE
     Dosage: 25 MG, QD
     Dates: start: 20100128, end: 20131130
  5. LAMOTRIGINE. [Suspect]
     Active Substance: LAMOTRIGINE
     Dosage: 50 MG, QD
     Route: 048
     Dates: start: 20131108, end: 20131130
  6. SILECE [Concomitant]
     Active Substance: FLUNITRAZEPAM
     Dates: start: 20121214, end: 20131130

REACTIONS (13)
  - Eyelid erosion [Unknown]
  - Erythema [Unknown]
  - Lip erosion [Unknown]
  - Stevens-Johnson syndrome [Recovered/Resolved]
  - Oral mucosa erosion [Unknown]
  - Rhabdomyolysis [Recovered/Resolved]
  - Rash generalised [Unknown]
  - Eye discharge [Unknown]
  - Pyrexia [Unknown]
  - Blood creatine phosphokinase increased [Unknown]
  - Ocular hyperaemia [Unknown]
  - Erythema of eyelid [Unknown]
  - Scab [Unknown]

NARRATIVE: CASE EVENT DATE: 20131129
